FAERS Safety Report 14539650 (Version 1)
Quarter: 2018Q1

REPORT INFORMATION
  Report Type: Report from Study
  Country: None (occurrence: CO)
  Receive Date: 20180216
  Receipt Date: 20180216
  Transmission Date: 20180509
  Serious: Yes (Death)
  Sender: FDA-Public Use
  Company Number: CO-ABBVIE-18S-036-2258901-00

PATIENT
  Age: 65 Year
  Sex: Male
  Weight: 52 kg

DRUGS (1)
  1. ZEMPLAR [Suspect]
     Active Substance: PARICALCITOL
     Indication: HYPERPARATHYROIDISM SECONDARY
     Dosage: POSTDIALYSIS
     Route: 042
     Dates: start: 20171020, end: 20171020

REACTIONS (2)
  - Respiratory arrest [Fatal]
  - Asphyxia [Fatal]

NARRATIVE: CASE EVENT DATE: 20180114
